FAERS Safety Report 4931799-3 (Version None)
Quarter: 2006Q1

REPORT INFORMATION
  Report Type: 
  Country: None (occurrence: None)
  Receive Date: 20060303
  Receipt Date: 20051010
  Transmission Date: 20060701
  Serious: Yes (Life-Threatening, Other)
  Sender: FDA-Public Use
  Company Number: 2005GB01963

PATIENT
  Age: 14 Year
  Sex: Female
  Weight: 40 kg

DRUGS (3)
  1. ATENOLOL [Suspect]
     Dosage: 50MG 28 TABLETS
     Route: 048
  2. METFORMIN [Suspect]
     Dosage: 500MG 126 TABLETS
     Route: 048
  3. DICLOFENAC [Suspect]
     Dosage: 75MG 14 TABLETS
     Route: 048

REACTIONS (7)
  - BRADYCARDIA [None]
  - CONVULSION [None]
  - GLASGOW COMA SCALE ABNORMAL [None]
  - HYPOGLYCAEMIA [None]
  - HYPOTENSION [None]
  - INTENTIONAL OVERDOSE [None]
  - LACTIC ACIDOSIS [None]
